FAERS Safety Report 9295999 (Version 1)
Quarter: 2013Q1

REPORT INFORMATION
  Report Type: Spontaneous
  Country: US (occurrence: None)
  Receive Date: 20121227
  Receipt Date: 20121227
  Transmission Date: 20140127
  Serious: Yes (Hospitalization)
  Sender: FDA-Public Use
  Company Number: PHEH2012US003587

PATIENT
  Age: 30 Year
  Sex: Male

DRUGS (1)
  1. EXJADE (CGP 72670) DISPERSIBLE TABLET [Suspect]
     Indication: SICKLE CELL ANAEMIA
     Route: 048

REACTIONS (3)
  - Sickle cell anaemia with crisis [None]
  - Headache [None]
  - Back pain [None]
